FAERS Safety Report 5225434-7 (Version None)
Quarter: 2007Q1

REPORT INFORMATION
  Report Type: 
  Country: None (occurrence: None)
  Receive Date: 20061201
  Receipt Date: 20061016
  Transmission Date: 20070707
  Serious: No
  Sender: FDA-Public Use
  Company Number: US200608004839

PATIENT
  Age: 77 Year
  Sex: Female
  Weight: 83 kg

DRUGS (13)
  1. CYMBALTA [Suspect]
     Indication: NEURALGIA
     Dosage: 60, ORAL
     Route: 048
     Dates: start: 20060329, end: 20060808
  2. PREGABALIN (PREGABALIN) [Concomitant]
  3. LIPITOR [Concomitant]
  4. SINGULAIR [Concomitant]
  5. SYNTHROID [Concomitant]
  6. NITROBID /BRA/ (NITROFURANTOIN) [Concomitant]
  7. TOPROL-XL [Concomitant]
  8. AVAPRO [Concomitant]
  9. BEXTRA [Concomitant]
  10. PLAQUENIL [Concomitant]
  11. PREDNISONE (PREDNISOLONE SODIUM PHOSPHATE) [Concomitant]
  12. DARVOCET-N 100 [Concomitant]
  13. SKELAXIN [Concomitant]

REACTIONS (5)
  - ABNORMAL DREAMS [None]
  - FEELING JITTERY [None]
  - MOVEMENT DISORDER [None]
  - NIGHTMARE [None]
  - TARDIVE DYSKINESIA [None]
